FAERS Safety Report 8226450-3 (Version None)
Quarter: 2012Q1

REPORT INFORMATION
  Report Type: 
  Country: None (occurrence: None)
  Receive Date: 20120322
  Receipt Date: 20120312
  Transmission Date: 20120608
  Serious: Yes (Life-Threatening)
  Sender: FDA-Public Use
  Company Number: CN-BRISTOL-MYERS SQUIBB COMPANY-16408650

PATIENT
  Age: 61 Year
  Sex: Female
  Weight: 45 kg

DRUGS (3)
  1. CISPLATIN [Suspect]
     Indication: NON-SMALL CELL LUNG CANCER
     Dosage: 100MG:16FEB10-10MAR10, 35MG:09APR10-09APR10.
     Route: 041
     Dates: start: 20100216, end: 20100409
  2. CETUXIMAB [Suspect]
     Indication: NON-SMALL CELL LUNG CANCER
     Dosage: 09FEB10-09FEB10,(77.1429MG) 16FEB10-21MAY10.(340MG,1 IN 1 WEEK).
     Route: 041
     Dates: start: 20100209, end: 20100521
  3. VINORELBINE [Suspect]
     Indication: NON-SMALL CELL LUNG CANCER
     Dosage: 33MG:16FEB10-26MAR10, 17MG:09APR10-21APR10.
     Route: 042
     Dates: start: 20100216, end: 20100421

REACTIONS (1)
  - NEUTROPENIA [None]
